FAERS Safety Report 10667666 (Version 1)
Quarter: 2014Q4

REPORT INFORMATION
  Report Type: Spontaneous
  Country: FR (occurrence: FR)
  Receive Date: 20141222
  Receipt Date: 20141222
  Transmission Date: 20150529
  Serious: Yes (Other)
  Sender: FDA-Public Use
  Company Number: FR-EISAI MEDICAL RESEARCH-EC-2014-002515

PATIENT
  Age: 35 Year
  Sex: Male

DRUGS (6)
  1. LAMACTIL (LAMOTRIGINE) [Concomitant]
     Indication: INFANTILE SPASMS
     Dosage: UNKNOWN
  2. URBANYL [Concomitant]
     Active Substance: CLOBAZAM
     Indication: INFANTILE SPASMS
     Dosage: UNKNOWN
  3. INOVELON [Suspect]
     Active Substance: RUFINAMIDE
     Indication: INFANTILE SPASMS
     Dosage: UNKNOWN
     Route: 048
     Dates: start: 2014, end: 201409
  4. INOVELON [Suspect]
     Active Substance: RUFINAMIDE
     Dosage: INCREASED DOSE
     Route: 048
     Dates: start: 201409, end: 2014
  5. SABRIL [Concomitant]
     Active Substance: VIGABATRIN
     Indication: INFANTILE SPASMS
     Dosage: UNKNOWN
     Route: 048
  6. DEPAKINE CHRONO [Concomitant]
     Active Substance: VALPROATE SODIUM
     Indication: INFANTILE SPASMS
     Dosage: UNKNOWN
     Route: 048

REACTIONS (5)
  - Thrombocytopenia [Recovered/Resolved]
  - Hepatic enzyme increased [Recovered/Resolved]
  - Endocarditis [Unknown]
  - Vomiting [Recovered/Resolved]
  - Off label use [Unknown]

NARRATIVE: CASE EVENT DATE: 201409
